FAERS Safety Report 4717105-8 (Version None)
Quarter: 2005Q3

REPORT INFORMATION
  Report Type: 
  Country: None (occurrence: None)
  Receive Date: 20050715
  Receipt Date: 20050701
  Transmission Date: 20060218
  Serious: Yes (Other)
  Sender: FDA-Public Use
  Company Number: 006#1#2005-00025

PATIENT
  Age: 55 Year
  Sex: Male

DRUGS (1)
  1. EDEX [Suspect]
     Indication: ERECTILE DYSFUNCTION
     Dosage: 1.20 MCG (20 MCG 2 IN 1 WEEK (S))
     Route: 011

REACTIONS (4)
  - CONVULSION [None]
  - ERECTILE DYSFUNCTION [None]
  - HYPERTENSION [None]
  - SPEECH DISORDER [None]
